FAERS Safety Report 8622254-8 (Version None)
Quarter: 2012Q3

REPORT INFORMATION
  Report Type: 
  Country: None (occurrence: None)
  Receive Date: 20120827
  Receipt Date: 20120814
  Transmission Date: 20120928
  Serious: Yes (Other)
  Sender: FDA-Public Use
  Company Number: SE-BRISTOL-MYERS SQUIBB COMPANY-16859050

PATIENT
  Age: 76 Year
  Sex: Female

DRUGS (3)
  1. AMOXICILLIN [Suspect]
  2. FLUCONAZOLE [Suspect]
  3. MYCOSTATIN [Suspect]

REACTIONS (2)
  - FUNGAL INFECTION [None]
  - ANGIOEDEMA [None]
